FAERS Safety Report 4836335-8 (Version None)
Quarter: 2005Q4

REPORT INFORMATION
  Report Type: 
  Country: None (occurrence: None)
  Receive Date: 20051118
  Receipt Date: 20051115
  Transmission Date: 20060501
  Serious: Yes (Death)
  Sender: FDA-Public Use
  Company Number: HQWYE178418MAR05

PATIENT
  Sex: Male

DRUGS (5)
  1. CORDARONE [Suspect]
     Indication: EXTRASYSTOLES
     Dosage: 800 MG PER  WEEK (MON/WED/FRI)
     Dates: start: 20010822, end: 20050201
  2. FENOFIBRATE [Concomitant]
  3. CARVEDILOL [Concomitant]
  4. ASPIRIN [Concomitant]
  5. ATENOLOL [Concomitant]

REACTIONS (3)
  - ABNORMAL BEHAVIOUR [None]
  - COMPLETED SUICIDE [None]
  - MAJOR DEPRESSION [None]
